FAERS Safety Report 15984145 (Version 1)
Quarter: 2019Q1

REPORT INFORMATION
  Report Type: Spontaneous
  Country: GB (occurrence: GB)
  Receive Date: 20190220
  Receipt Date: 20190220
  Transmission Date: 20190418
  Serious: Yes (Other)
  Sender: FDA-Public Use
  Company Number: GB-AUROBINDO-AUR-APL-2019-008687

PATIENT

DRUGS (2)
  1. CODEINE [Suspect]
     Active Substance: CODEINE
     Indication: BACK PAIN
     Dosage: 30 MILLIGRAM
     Route: 048
     Dates: start: 20190125, end: 20190125
  2. PARACETAMOL [Suspect]
     Active Substance: ACETAMINOPHEN
     Indication: BACK PAIN
     Dosage: 500 MILLIGRAM
     Route: 048
     Dates: start: 20190125, end: 20190125

REACTIONS (1)
  - Vomiting [Recovering/Resolving]

NARRATIVE: CASE EVENT DATE: 20190125
